FAERS Safety Report 6750082-7 (Version None)
Quarter: 2010Q2

REPORT INFORMATION
  Report Type: 
  Country: None (occurrence: None)
  Receive Date: 20100527
  Receipt Date: 20100527
  Transmission Date: 20101027
  Serious: Yes (Death)
  Sender: FDA-Public Use
  Company Number: None

PATIENT
  Age: 1 Month
  Sex: Male
  Weight: 5.1256 kg

DRUGS (1)
  1. SYNAGIS [Suspect]
     Indication: FALLOT'S TETRALOGY
     Dosage: 15MG/KG
     Dates: start: 20090929, end: 20091029

REACTIONS (1)
  - DEATH [None]
